FAERS Safety Report 23446661 (Version 5)
Quarter: 2024Q1

REPORT INFORMATION
  Report Type: Spontaneous
  Country: US (occurrence: US)
  Receive Date: 20240126
  Receipt Date: 20240313
  Transmission Date: 20240409
  Serious: No
  Sender: FDA-Public Use
  Company Number: US-PFIZER INC-PV202400011273

PATIENT
  Age: 74 Year
  Sex: Female

DRUGS (2)
  1. IBRANCE [Suspect]
     Active Substance: PALBOCICLIB
     Dosage: UNK
     Dates: start: 20240113
  2. IBRANCE [Suspect]
     Active Substance: PALBOCICLIB
     Dosage: 100 MG
     Dates: start: 20240217

REACTIONS (11)
  - Fatigue [Not Recovered/Not Resolved]
  - Dyspnoea [Not Recovered/Not Resolved]
  - Insomnia [Unknown]
  - Brain fog [Unknown]
  - Oropharyngeal pain [Unknown]
  - Product dose omission in error [Unknown]
  - White blood cell count decreased [Unknown]
  - Blood iron decreased [Unknown]
  - Alopecia [Unknown]
  - Gallbladder disorder [Unknown]
  - Madarosis [Unknown]

NARRATIVE: CASE EVENT DATE: 20240201
